FAERS Safety Report 24528807 (Version 1)
Quarter: 2024Q4

REPORT INFORMATION
  Report Type: Spontaneous
  Country: US (occurrence: None)
  Receive Date: 20241018
  Receipt Date: 20241018
  Transmission Date: 20250115
  Serious: Yes (Hospitalization)
  Sender: Public
  Company Number: None

PATIENT
  Sex: Female

DRUGS (4)
  1. TASIGNA [Suspect]
     Active Substance: NILOTINIB
     Indication: Chronic myeloid leukaemia
     Route: 048
     Dates: start: 20231110
  2. ALBUTEROL AER HFA [Concomitant]
  3. TASIGNA CAP 150MG [Concomitant]
  4. VYVANSE CAP 30MG [Concomitant]

REACTIONS (1)
  - Atrial fibrillation [None]
